FAERS Safety Report 18447270 (Version 1)
Quarter: 2020Q4

REPORT INFORMATION
  Report Type: Spontaneous
  Country: US (occurrence: US)
  Receive Date: 20201030
  Receipt Date: 20201030
  Transmission Date: 20210114
  Serious: No
  Sender: FDA-Public Use
  Company Number: US-NOVOPROD-713753

PATIENT
  Age: 91 Year
  Sex: Male

DRUGS (1)
  1. TRESIBA [Suspect]
     Active Substance: INSULIN DEGLUDEC
     Indication: TYPE 2 DIABETES MELLITUS
     Dosage: 14 UNITS AT BEDTIME
     Route: 058
     Dates: start: 202001

REACTIONS (4)
  - Increased appetite [Not Recovered/Not Resolved]
  - Blood glucose decreased [Recovered/Resolved]
  - Blood glucose increased [Recovered/Resolved]
  - Hunger [Unknown]

NARRATIVE: CASE EVENT DATE: 2020
